FAERS Safety Report 5917372-9 (Version None)
Quarter: 2008Q4

REPORT INFORMATION
  Report Type: 
  Country: None (occurrence: None)
  Receive Date: 20081014
  Receipt Date: 20081006
  Transmission Date: 20090506
  Serious: Yes (Hospitalization, Other)
  Sender: FDA-Public Use
  Company Number: A0726184A

PATIENT
  Age: 63 Year
  Sex: Female

DRUGS (3)
  1. MALARONE [Suspect]
     Indication: MALARIA PROPHYLAXIS
     Route: 048
     Dates: start: 20080401, end: 20080430
  2. PROZAC [Concomitant]
     Dosage: 40MG PER DAY
     Route: 048
     Dates: start: 19950101, end: 20080414
  3. ANAFRANIL [Concomitant]
     Dosage: 25MG AT NIGHT
     Route: 048
     Dates: start: 19950101, end: 20080424

REACTIONS (4)
  - EUPHORIC MOOD [None]
  - INSOMNIA [None]
  - LOGORRHOEA [None]
  - MANIA [None]
